FAERS Safety Report 16504051 (Version 2)
Quarter: 2019Q3

REPORT INFORMATION
  Report Type: Spontaneous
  Country: US (occurrence: US)
  Receive Date: 20190701
  Receipt Date: 20190703
  Transmission Date: 20191004
  Serious: Yes (Other)
  Sender: FDA-Public Use
  Company Number: US-BAYER-2019-123140

PATIENT
  Age: 69 Year
  Sex: Female

DRUGS (1)
  1. CIPRO [Suspect]
     Active Substance: CIPROFLOXACIN HYDROCHLORIDE
     Dosage: 250 MG, BID
     Dates: start: 20190614

REACTIONS (4)
  - Palpitations [None]
  - Vision blurred [None]
  - Dizziness [None]
  - Arrhythmia [None]

NARRATIVE: CASE EVENT DATE: 20190614
